FAERS Safety Report 19155414 (Version 1)
Quarter: 2021Q2

REPORT INFORMATION
  Report Type: Report from Study
  Country: None (occurrence: CA)
  Receive Date: 20210420
  Receipt Date: 20210420
  Transmission Date: 20210717
  Serious: Yes (Other)
  Sender: FDA-Public Use
  Company Number: CA-ABBVIE-20K-028-3703889-00

PATIENT
  Sex: Male

DRUGS (8)
  1. IMURAN [Suspect]
     Active Substance: AZATHIOPRINE
     Route: 065
  2. PREDNISONE. [Suspect]
     Active Substance: PREDNISONE
     Indication: PRODUCT USED FOR UNKNOWN INDICATION
     Route: 065
  3. ENTYVIO [Suspect]
     Active Substance: VEDOLIZUMAB
     Indication: PRODUCT USED FOR UNKNOWN INDICATION
     Route: 065
  4. REMICADE [Suspect]
     Active Substance: INFLIXIMAB
     Indication: PRODUCT USED FOR UNKNOWN INDICATION
     Route: 065
  5. HUMIRA [Suspect]
     Active Substance: ADALIMUMAB
     Route: 058
  6. IMURAN [Suspect]
     Active Substance: AZATHIOPRINE
     Indication: PRODUCT USED FOR UNKNOWN INDICATION
     Route: 065
  7. HUMIRA [Suspect]
     Active Substance: ADALIMUMAB
     Indication: CROHN^S DISEASE
     Route: 058
     Dates: start: 20200605
  8. SIMPONI [Suspect]
     Active Substance: GOLIMUMAB
     Indication: PRODUCT USED FOR UNKNOWN INDICATION
     Route: 065

REACTIONS (16)
  - Abdominal discomfort [Recovering/Resolving]
  - Drug ineffective [Unknown]
  - Drug dependence [Unknown]
  - Therapeutic product effect decreased [Unknown]
  - Chest pain [Unknown]
  - Frequent bowel movements [Unknown]
  - Crohn^s disease [Not Recovered/Not Resolved]
  - Depression [Not Recovered/Not Resolved]
  - Unevaluable event [Recovering/Resolving]
  - Faecal calprotectin abnormal [Unknown]
  - Lung neoplasm malignant [Not Recovered/Not Resolved]
  - Drug level abnormal [Unknown]
  - Diarrhoea [Recovering/Resolving]
  - Haematochezia [Recovered/Resolved]
  - Drug specific antibody present [Unknown]
  - Dyspnoea [Not Recovered/Not Resolved]

NARRATIVE: CASE EVENT DATE: 2020
